FAERS Safety Report 23528395 (Version 1)
Quarter: 2024Q1

REPORT INFORMATION
  Report Type: Spontaneous
  Country: IN (occurrence: IN)
  Receive Date: 20240215
  Receipt Date: 20240215
  Transmission Date: 20240409
  Serious: Yes (Other)
  Sender: FDA-Public Use
  Company Number: IN-PFIZER INC-2021082307

PATIENT
  Age: 42 Year
  Sex: Female

DRUGS (7)
  1. PALBOCICLIB [Suspect]
     Active Substance: PALBOCICLIB
     Indication: Breast cancer metastatic
     Dosage: 125 MG, CYCLIC: DAILY D1-D21 (21X28)
     Route: 048
     Dates: start: 20201121
  2. LETROZOLE [Concomitant]
     Active Substance: LETROZOLE
     Dosage: 2.5 MG, 1X/DAY
  3. GOSERELIN [Concomitant]
     Active Substance: GOSERELIN
     Dosage: 3.6 MG, CYCLIC: EVERY (Q) 28 DAYS
  4. LEUPROLIDE ACETATE [Concomitant]
     Active Substance: LEUPROLIDE ACETATE
     Dosage: 3.7 MG, 28 DAYS
  5. LAMEZ [Concomitant]
     Dosage: 50 MG, DAILY
  6. PROTHIADEN [Concomitant]
     Active Substance: DOTHIEPIN HYDROCHLORIDE
     Dosage: 75 MG
  7. VELOZ [Concomitant]
     Dosage: 40 MG, DAILY

REACTIONS (9)
  - Second primary malignancy [Unknown]
  - Renal cell carcinoma [Unknown]
  - Gastrointestinal disorder [Unknown]
  - Fatigue [Unknown]
  - Folliculitis [Unknown]
  - Tooth disorder [Unknown]
  - Haemoglobin decreased [Unknown]
  - White blood cell count decreased [Unknown]
  - Platelet count decreased [Unknown]

NARRATIVE: CASE EVENT DATE: 20230601
